FAERS Safety Report 4476969-6 (Version None)
Quarter: 2004Q4

REPORT INFORMATION
  Report Type: 
  Country: None (occurrence: None)
  Receive Date: 20041012
  Receipt Date: 20041001
  Transmission Date: 20050328
  Serious: Yes (Other)
  Sender: FDA-Public Use
  Company Number: 163-20785-04100134

PATIENT

DRUGS (1)
  1. THALOMID [Suspect]
     Indication: MYELOID METAPLASIA
     Dosage: 200 MG QHS INCREASED 50 MG/WK TO 1000 MG QHS, ORAL
     Route: 048

REACTIONS (8)
  - CONSTIPATION [None]
  - DEPRESSED LEVEL OF CONSCIOUSNESS [None]
  - FATIGUE [None]
  - GRANULOCYTE COUNT DECREASED [None]
  - HAEMOGLOBIN DECREASED [None]
  - HAEMOLYSIS [None]
  - NEUTROPHIL COUNT DECREASED [None]
  - PERIPHERAL SENSORY NEUROPATHY [None]
